FAERS Safety Report 9974225 (Version 1)
Quarter: 2014Q1

REPORT INFORMATION
  Report Type: Report from Study
  Country: US (occurrence: US)
  Receive Date: 20140306
  Receipt Date: 20140306
  Transmission Date: 20141002
  Serious: No
  Sender: FDA-Public Use
  Company Number: US-ABBVIE-13P-163-1158722-00

PATIENT
  Sex: Female

DRUGS (9)
  1. HUMIRA [Suspect]
     Indication: COLITIS ULCERATIVE
     Dates: start: 20130910, end: 20130917
  2. HUMIRA [Suspect]
     Dates: start: 20130917
  3. MENEST (AN HRT EXTRACT OF YAM) [Concomitant]
     Indication: MENOPAUSE
  4. LIMOTIL [Concomitant]
     Indication: PRODUCT USED FOR UNKNOWN INDICATION
  5. CARDIA XT [Concomitant]
     Indication: HYPERTENSION
  6. SYNTHROID [Concomitant]
     Indication: THYROID DISORDER
  7. AMITRIPTYLINE [Concomitant]
     Indication: PRODUCT USED FOR UNKNOWN INDICATION
     Dosage: BEDTIME
  8. LIQUID OPIUM [Concomitant]
     Indication: PAIN
  9. LIQUID OPIUM [Concomitant]
     Indication: ABDOMINAL PAIN

REACTIONS (2)
  - Inappropriate schedule of drug administration [Unknown]
  - Diarrhoea [Unknown]
